FAERS Safety Report 4781096-4 (Version None)
Quarter: 2005Q3

REPORT INFORMATION
  Report Type: 
  Country: None (occurrence: None)
  Receive Date: 20050926
  Receipt Date: 20050920
  Transmission Date: 20060218
  Serious: Yes (Death)
  Sender: FDA-Public Use
  Company Number: NLWYE980415SEP05

PATIENT
  Age: 70 Year
  Sex: Female

DRUGS (3)
  1. NEORAL [Suspect]
     Indication: RENAL TRANSPLANT
     Dosage: 50 MG 2X PER 1 DAY; ORAL
     Route: 048
     Dates: start: 20020101, end: 20050907
  2. IMURAN [Suspect]
     Dosage: 25 MG 1X PER 3 DAY; ORAL
     Route: 048
     Dates: start: 20020101, end: 20050528
  3. PREDNISONE [Suspect]
     Indication: RENAL TRANSPLANT
     Dosage: 7.5 MG 1X PER 1 DAY; ORAL
     Route: 048
     Dates: start: 20020101, end: 20050907

REACTIONS (2)
  - EPSTEIN-BARR VIRUS INFECTION [None]
  - MYELODYSPLASTIC SYNDROME [None]
